FAERS Safety Report 10089291 (Version 6)
Quarter: 2014Q2

REPORT INFORMATION
  Report Type: Spontaneous
  Country: IE (occurrence: IE)
  Receive Date: 20140421
  Receipt Date: 20140623
  Transmission Date: 20141212
  Serious: Yes (Hospitalization, Other)
  Sender: FDA-Public Use
  Company Number: PHFR2014IE002161

PATIENT
  Age: 41 Year
  Sex: Male

DRUGS (5)
  1. CLOZARIL [Suspect]
     Indication: SCHIZOAFFECTIVE DISORDER
     Dosage: 100 MG, QHS
     Route: 048
     Dates: start: 20131025, end: 20140408
  2. CLOZARIL [Suspect]
     Indication: PSYCHOTIC DISORDER
  3. CLOZARIL [Suspect]
     Indication: SCHIZOPHRENIA
  4. VALPROATE [Concomitant]
     Indication: MOOD ALTERED
     Dosage: 1000 MG, QD
     Route: 048
     Dates: start: 201311
  5. DIAZEPAM [Concomitant]
     Indication: ANXIETY
     Dosage: 10 MG, QD
     Route: 048
     Dates: start: 201403

REACTIONS (3)
  - Neutrophil count decreased [Recovering/Resolving]
  - Differential white blood cell count abnormal [Recovering/Resolving]
  - Pyrexia [Recovered/Resolved]
